FAERS Safety Report 5525626-3 (Version None)
Quarter: 2007Q4

REPORT INFORMATION
  Report Type: 
  Country: None (occurrence: None)
  Receive Date: 20071126
  Receipt Date: 20071121
  Transmission Date: 20080405
  Serious: Yes (Hospitalization)
  Sender: FDA-Public Use
  Company Number: JP-BRISTOL-MYERS SQUIBB COMPANY-13984430

PATIENT
  Age: 58 Year
  Sex: Male

DRUGS (6)
  1. TAXOL [Suspect]
     Indication: HYPOPHARYNGEAL CANCER
     Route: 041
     Dates: start: 20071025, end: 20071025
  2. PARAPLATIN [Suspect]
     Indication: HYPOPHARYNGEAL CANCER
     Route: 041
     Dates: start: 20071025, end: 20071025
  3. DECADRON [Suspect]
     Indication: PROPHYLAXIS OF NAUSEA AND VOMITING
     Route: 041
     Dates: start: 20071025
  4. ZANTAC [Concomitant]
     Route: 041
     Dates: start: 20071025
  5. RESTAMIN [Concomitant]
     Route: 048
     Dates: start: 20071025
  6. KYTRIL [Concomitant]
     Route: 041
     Dates: start: 20071025

REACTIONS (5)
  - ARTHRALGIA [None]
  - FLUSHING [None]
  - HENOCH-SCHONLEIN PURPURA [None]
  - PRURITUS [None]
  - PYREXIA [None]
